FAERS Safety Report 6267752-X (Version None)
Quarter: 2009Q3

REPORT INFORMATION
  Report Type: 
  Country: None (occurrence: None)
  Receive Date: 20090714
  Receipt Date: 20090703
  Transmission Date: 20100115
  Serious: Yes (Other)
  Sender: FDA-Public Use
  Company Number: CN-ROCHE-641901

PATIENT
  Sex: Female
  Weight: 52.5 kg

DRUGS (2)
  1. CELLCEPT [Suspect]
     Indication: RENAL TRANSPLANT
     Dosage: 2 CAPS IN THE MORNING, 1 CAP IN THE EVENING.
     Route: 048
     Dates: start: 20010620
  2. CYCLOSPORINE [Concomitant]
     Indication: RENAL TRANSPLANT
     Dosage: TRADE NAME: XINSAISIPING. GENERIC NAME: CYCLOSPORIN A.
     Route: 048
     Dates: start: 20010620

REACTIONS (2)
  - CEREBRAL ISCHAEMIA [None]
  - FATIGUE [None]
